FAERS Safety Report 7055426-7 (Version None)
Quarter: 2010Q4

REPORT INFORMATION
  Report Type: 
  Country: None (occurrence: None)
  Receive Date: 20101021
  Receipt Date: 20101013
  Transmission Date: 20110411
  Serious: Yes (Disabling)
  Sender: FDA-Public Use
  Company Number: ZA-ABBOTT-10P-143-0677835-00

PATIENT
  Age: 40 Year
  Sex: Male

DRUGS (2)
  1. SIBUTRAMINE HYDROCHLORIDE MONOHYDRATE [Suspect]
     Indication: CENTRAL OBESITY
     Route: 048
     Dates: start: 20100810, end: 20100814
  2. NOVORHIX INSULIN INJECTION [Concomitant]
     Indication: DIABETES MELLITUS
     Dosage: 24U MANE + 20U NOCTE
     Route: 058

REACTIONS (4)
  - ANXIETY [None]
  - JUDGEMENT IMPAIRED [None]
  - PALPITATIONS [None]
  - SELF ESTEEM DECREASED [None]
